FAERS Safety Report 4446504-7 (Version None)
Quarter: 2004Q3

REPORT INFORMATION
  Report Type: 
  Country: None (occurrence: None)
  Receive Date: 20040902
  Receipt Date: 20040827
  Transmission Date: 20050211
  Serious: Yes (Hospitalization)
  Sender: FDA-Public Use
  Company Number: 2004PK01440

PATIENT
  Age: 39 Year
  Sex: Female
  Weight: 58 kg

DRUGS (4)
  1. ASCO TOP [Suspect]
     Indication: HEADACHE
     Dosage: 1 DF DAILY PO
     Route: 048
     Dates: start: 20040410, end: 20040522
  2. IBUPROFEN [Concomitant]
  3. ALBUTEROL [Concomitant]
  4. ALLERGY DROPS [Concomitant]

REACTIONS (1)
  - ANAEMIA HAEMOLYTIC AUTOIMMUNE [None]
